FAERS Safety Report 11646552 (Version 2)
Quarter: 2016Q2

REPORT INFORMATION
  Report Type: Spontaneous
  Country: US (occurrence: US)
  Receive Date: 20151020
  Receipt Date: 20160429
  Transmission Date: 20160815
  Serious: No
  Sender: FDA-Public Use
  Company Number: US-ROCHE-1615342

PATIENT
  Sex: Female
  Weight: 63.11 kg

DRUGS (2)
  1. ESBRIET [Suspect]
     Active Substance: PIRFENIDONE
     Indication: IDIOPATHIC PULMONARY FIBROSIS
     Route: 048
     Dates: start: 20150212
  2. ESBRIET [Suspect]
     Active Substance: PIRFENIDONE
     Dosage: 2 CAPS AM, 3 CAPS AFTERNOON, 2 CAPS BEDTIME
     Route: 048
     Dates: start: 20150422

REACTIONS (3)
  - Photosensitivity reaction [Unknown]
  - Nausea [Unknown]
  - Bronchitis [Unknown]
